FAERS Safety Report 7585429-5 (Version None)
Quarter: 2011Q3

REPORT INFORMATION
  Report Type: 
  Country: None (occurrence: None)
  Receive Date: 20110701
  Receipt Date: 20110623
  Transmission Date: 20111222
  Serious: Yes (Life-Threatening, Hospitalization)
  Sender: FDA-Public Use
  Company Number: US-BAYER-201036057NA

PATIENT
  Sex: Female
  Weight: 81.633 kg

DRUGS (8)
  1. TYLENOL W/ CODEINE NO. 3 [Concomitant]
     Dosage: UNK UNK, PRN
  2. ERYTHROMYCIN [Concomitant]
  3. IBUPROFEN [Concomitant]
  4. YAZ [Suspect]
     Dosage: UNK
     Dates: start: 20070101, end: 20070101
  5. YAZ [Suspect]
     Indication: MENSTRUATION IRREGULAR
     Dosage: UNK
     Route: 048
     Dates: start: 20060101, end: 20060101
  6. ALBUTEROL SULFATE AUTOHALER [Concomitant]
     Dosage: UNK
  7. CLARITHROMYCIN [Concomitant]
  8. OXYCODONE HCL AND ACETAMINOPHEN [Concomitant]

REACTIONS (3)
  - PULMONARY EMBOLISM [None]
  - PNEUMONIA [None]
  - PNEUMONITIS [None]
